FAERS Safety Report 4591557-9 (Version None)
Quarter: 2005Q1

REPORT INFORMATION
  Report Type: 
  Country: None (occurrence: None)
  Receive Date: 20050223
  Receipt Date: 20050223
  Transmission Date: 20050727
  Serious: Yes (Hospitalization)
  Sender: FDA-Public Use
  Company Number: None

PATIENT
  Age: 62 Year
  Sex: Female
  Weight: 80.9 kg

DRUGS (3)
  1. OXALIPLATIN [Suspect]
     Indication: METASTATIC MALIGNANT MELANOMA
     Dosage: 85 MG/M2 IV Q3 WK
     Route: 042
     Dates: start: 20050128
  2. DOCETAXEL [Suspect]
     Dosage: 65 MG/M2 IV Q3 WK
     Route: 042
     Dates: start: 20050127
  3. GM-CSF 500 MCG SQ X 10 DAYS (1/29 -} 2/9/05) [Suspect]
     Route: 058

REACTIONS (4)
  - DEHYDRATION [None]
  - NAUSEA [None]
  - PYREXIA [None]
  - VOMITING [None]
